FAERS Safety Report 5493090-9 (Version None)
Quarter: 2007Q4

REPORT INFORMATION
  Report Type: 
  Country: None (occurrence: None)
  Receive Date: 20071019
  Receipt Date: 20071010
  Transmission Date: 20080405
  Serious: Yes (Hospitalization)
  Sender: FDA-Public Use
  Company Number: 430083K07USA

PATIENT
  Age: 61 Year
  Sex: Male
  Weight: 78.0187 kg

DRUGS (4)
  1. NOVANTRONE [Suspect]
     Indication: MULTIPLE SCLEROSIS
     Dosage: ONCE, INTRAVENOUS
     Route: 042
     Dates: start: 20070122, end: 20070122
  2. PAXIL [Concomitant]
  3. DETROL [Concomitant]
  4. AMANTADINE HCL [Concomitant]

REACTIONS (2)
  - CORONARY ARTERY OCCLUSION [None]
  - MYOCARDIAL INFARCTION [None]
